FAERS Safety Report 9299220 (Version 2)
Quarter: 2013Q2

REPORT INFORMATION
  Report Type: Spontaneous
  Country: PL (occurrence: PL)
  Receive Date: 20130520
  Receipt Date: 20130607
  Transmission Date: 20140414
  Serious: Yes (Life-Threatening, Hospitalization, Other)
  Sender: FDA-Public Use
  Company Number: PL-BAXTER-2013BAX018830

PATIENT
  Age: 32 Year
  Sex: Male

DRUGS (8)
  1. ENDOXAN [Suspect]
     Indication: DIFFUSE LARGE B-CELL LYMPHOMA
     Dosage: ON THE FIRST DAY
     Route: 065
     Dates: start: 200808
  2. ENDOXAN [Suspect]
     Route: 065
  3. RITUXIMAB [Suspect]
     Indication: DIFFUSE LARGE B-CELL LYMPHOMA
     Dosage: ON THE FIRST DAY
     Route: 065
     Dates: start: 200808
  4. RITUXIMAB [Suspect]
  5. DOXORUBICIN [Suspect]
     Indication: DIFFUSE LARGE B-CELL LYMPHOMA
     Dosage: ON THE FIRST DAY
     Route: 065
     Dates: start: 200808
  6. DOXORUBICIN [Suspect]
     Route: 065
  7. VINCRISTINE [Suspect]
     Indication: DIFFUSE LARGE B-CELL LYMPHOMA
     Dosage: MAX 2MG PER CYCLE; ON THE FIRST DAY
     Route: 065
     Dates: start: 200808
  8. PREDNISONE [Suspect]
     Indication: DIFFUSE LARGE B-CELL LYMPHOMA
     Dosage: ON DAYS 1-5 ADMINISTERED MOST FREQUENTLY 6-8 TIMES IN 21 DAY INTERVALS
     Route: 065
     Dates: start: 200808

REACTIONS (3)
  - Small intestinal perforation [Recovered/Resolved]
  - Abdominal pain [Recovered/Resolved]
  - Neutropenia [Recovered/Resolved]
